FAERS Safety Report 6108827-5 (Version None)
Quarter: 2009Q1

REPORT INFORMATION
  Report Type: 
  Country: None (occurrence: None)
  Receive Date: 20090310
  Receipt Date: 20090306
  Transmission Date: 20090719
  Serious: Yes (Other)
  Sender: FDA-Public Use
  Company Number: FR-BRISTOL-MYERS SQUIBB COMPANY-14534366

PATIENT
  Sex: Female

DRUGS (1)
  1. CORGARD [Suspect]
     Route: 048
     Dates: start: 20080601

REACTIONS (3)
  - CARDIAC FAILURE [None]
  - CHILLBLAINS [None]
  - HEART RATE DECREASED [None]
